FAERS Safety Report 9606014 (Version 1)
Quarter: 2013Q4

REPORT INFORMATION
  Report Type: Spontaneous
  Country: DE (occurrence: DE)
  Receive Date: 20131008
  Receipt Date: 20131008
  Transmission Date: 20140711
  Serious: Yes (Congenital Anomaly)
  Sender: FDA-Public Use
  Company Number: GXKR2013DE003199

PATIENT
  Age: 1 Day
  Sex: Male
  Weight: 3.4 kg

DRUGS (4)
  1. LAMOTRIGINE [Suspect]
     Dosage: MATERNAL DOSE: 1X25MG/DAY
     Route: 064
  2. ANTELEPSIN [Suspect]
     Dosage: MATERNAL DOSE: 1X0.5 MG/DAY (PROBABLY UP FROM 27TH GESTATIONAL WEEK)
     Route: 064
  3. FOLIO [Concomitant]
     Dosage: MATERNAL DOSE: 1X0.4MG/DAY
     Route: 064
  4. PARACETAMOL [Concomitant]
     Dosage: MATERNAL DOSE: ONCE IN GW 30
     Route: 064

REACTIONS (4)
  - Atrial septal defect [Unknown]
  - Cleft lip and palate [Unknown]
  - Patent ductus arteriosus [Unknown]
  - Foetal exposure during pregnancy [Unknown]
